FAERS Safety Report 15643712 (Version 1)
Quarter: 2018Q4

REPORT INFORMATION
  Report Type: Spontaneous
  Country: US (occurrence: US)
  Receive Date: 20181115
  Receipt Date: 20181115
  Transmission Date: 20190205
  Serious: No
  Sender: FDA-Public Use
  Company Number: None

PATIENT
  Age: 35 Year
  Sex: Male
  Weight: 96.75 kg

DRUGS (1)
  1. AIMOVIG [Suspect]
     Active Substance: ERENUMAB-AOOE
     Indication: MIGRAINE
     Dosage: 1 INJECTION(S) PER MONTH; INJECTION IN THIGH?
     Dates: start: 20180913, end: 20181013

REACTIONS (12)
  - Back pain [None]
  - Drug ineffective [None]
  - Fatigue [None]
  - Alopecia [None]
  - Migraine [None]
  - Somnolence [None]
  - Constipation [None]
  - Insomnia [None]
  - Therapy non-responder [None]
  - Hypokinesia [None]
  - Nausea [None]
  - Condition aggravated [None]

NARRATIVE: CASE EVENT DATE: 20181101
